FAERS Safety Report 12930570 (Version 3)
Quarter: 2017Q3

REPORT INFORMATION
  Report Type: Spontaneous
  Country: JP (occurrence: JP)
  Receive Date: 20161110
  Receipt Date: 20170914
  Transmission Date: 20171127
  Serious: Yes (Hospitalization, Other)
  Sender: FDA-Public Use
  Company Number: JP-DSJP-DSJ-2016-136960

PATIENT

DRUGS (3)
  1. LIXIANA TABLETS [Suspect]
     Active Substance: EDOXABAN TOSYLATE
     Dosage: 60MG/DAY
     Route: 048
     Dates: start: 2016
  2. UROKINASE [Suspect]
     Active Substance: UROKINASE
     Dosage: UNK
     Route: 041
     Dates: start: 201602, end: 2016
  3. LIXIANA TABLETS [Suspect]
     Active Substance: EDOXABAN TOSYLATE
     Indication: ATRIAL FIBRILLATION
     Dosage: 30MG/DAY
     Route: 048
     Dates: start: 2016, end: 201602

REACTIONS (5)
  - Retinal artery occlusion [Not Recovered/Not Resolved]
  - Treatment noncompliance [Unknown]
  - Cerebral microhaemorrhage [Unknown]
  - Cerebral infarction [Unknown]
  - Drug ineffective [Unknown]

NARRATIVE: CASE EVENT DATE: 2016
